FAERS Safety Report 7695891 (Version 4)
Quarter: 2014Q1

REPORT INFORMATION
  Report Type: Spontaneous
  Country: US (occurrence: US)
  Receive Date: 20101207
  Receipt Date: 20140107
  Transmission Date: 20141002
  Serious: Yes (Hospitalization)
  Sender: FDA-Public Use
  Company Number: US-BAYER-2010-001712

PATIENT
  Age: 20 Year
  Sex: Female
  Weight: 73.02 kg

DRUGS (11)
  1. YASMIN [Suspect]
  2. YAZ [Suspect]
  3. PROMETHAZINE [PROMETHAZINE] [Concomitant]
     Indication: GALLBLADDER DISORDER
     Dosage: 25 MG, UNK
     Dates: start: 20081118
  4. PROMETHAZINE [PROMETHAZINE] [Concomitant]
     Indication: CHOLELITHIASIS
  5. LORTAB [Concomitant]
     Indication: ABDOMINAL PAIN UPPER
     Dosage: UNK
     Dates: start: 2008
  6. ONDANSETRON [Concomitant]
     Dosage: 4 MG, UNK
     Dates: start: 20081107
  7. METRONIDAZOLE [Concomitant]
     Dosage: 500 MG, UNK
     Dates: start: 20081020
  8. CLINDESSE [Concomitant]
     Dosage: 2 %, UNK
     Dates: start: 20081029
  9. ZOFRAN [Concomitant]
  10. PREVACID [Concomitant]
  11. PRENATAL VITAMINS [Concomitant]

REACTIONS (7)
  - Cholecystitis chronic [None]
  - Cholelithiasis [None]
  - Gallbladder disorder [None]
  - Gastrooesophageal reflux disease [None]
  - Ulcer [None]
  - Cardiac flutter [None]
  - Abdominal pain [None]
